FAERS Safety Report 10101134 (Version 4)
Quarter: 2014Q3

REPORT INFORMATION
  Report Type: Spontaneous
  Country: IT (occurrence: IT)
  Receive Date: 20140424
  Receipt Date: 20140801
  Transmission Date: 20150326
  Serious: Yes (Hospitalization)
  Sender: FDA-Public Use
  Company Number: IT-BRISTOL-MYERS SQUIBB COMPANY-20667028

PATIENT
  Age: 74 Year
  Sex: Male
  Weight: 67 kg

DRUGS (9)
  1. CARDIOASPIRIN [Concomitant]
     Active Substance: ASPIRIN
     Dosage: 1 DF:1 TAB 30 X 100 MG?DAILY DOSE:1 DOSAGE UNIT
     Route: 048
  2. OLANZAPINE. [Concomitant]
     Active Substance: OLANZAPINE
  3. ASPIRINETTA [Concomitant]
     Active Substance: ASPIRIN
     Dosage: 1DF-1 UNIT?30*100 MG TABLETS ?GASTRO RESISTANT TABLET
     Route: 048
  4. PIOGLITAZONE HCL [Concomitant]
     Active Substance: PIOGLITAZONE
     Indication: DIABETES MELLITUS
     Route: 048
  5. VILDAGLIPTIN [Concomitant]
     Active Substance: VILDAGLIPTIN
     Indication: DIABETES MELLITUS
     Route: 048
  6. GLICLAZIDE [Concomitant]
     Active Substance: GLICLAZIDE
     Indication: DIABETES MELLITUS
     Route: 048
  7. RISPERIDONE. [Concomitant]
     Active Substance: RISPERIDONE
     Route: 048
  8. METFORMIN HCL [Suspect]
     Active Substance: METFORMIN HYDROCHLORIDE
     Indication: DIABETES MELLITUS
     Dosage: 1 DF: UNIT NOS
     Route: 048
     Dates: start: 20090301, end: 20140301
  9. SERTRALINE HCL [Concomitant]
     Active Substance: SERTRALINE HYDROCHLORIDE
     Route: 048

REACTIONS (3)
  - Metabolic acidosis [Recovered/Resolved]
  - Renal failure acute [Recovering/Resolving]
  - Sopor [Recovering/Resolving]

NARRATIVE: CASE EVENT DATE: 20140301
